FAERS Safety Report 9921306 (Version 2)
Quarter: 2014Q1

REPORT INFORMATION
  Report Type: Spontaneous
  Country: FI (occurrence: FI)
  Receive Date: 20140225
  Receipt Date: 20140225
  Transmission Date: 20141002
  Serious: Yes (Hospitalization)
  Sender: FDA-Public Use
  Company Number: PHHY2014FI005851

PATIENT
  Age: 81 Year
  Sex: Male

DRUGS (4)
  1. EXELON [Suspect]
     Indication: DEMENTIA ALZHEIMER^S TYPE
     Dosage: 4.5 MG, BID
     Dates: start: 2013, end: 201312
  2. EXELON [Suspect]
     Dosage: 6 MG, BID
     Dates: start: 201312, end: 20140114
  3. EXELON [Suspect]
     Dosage: 4.5 MG, BID
     Dates: start: 20140114
  4. EXELON PATCH [Suspect]
     Indication: DEMENTIA ALZHEIMER^S TYPE
     Dosage: 4.6 MG, DAILY
     Route: 062
     Dates: start: 201203, end: 2013

REACTIONS (3)
  - Abnormal behaviour [Not Recovered/Not Resolved]
  - Blood pressure increased [Recovered/Resolved]
  - Restlessness [Not Recovered/Not Resolved]
